FAERS Safety Report 4307443-5 (Version None)
Quarter: 2004Q1

REPORT INFORMATION
  Report Type: 
  Country: None (occurrence: None)
  Receive Date: 20040226
  Receipt Date: 20040220
  Transmission Date: 20041129
  Serious: Yes (Death, Hospitalization)
  Sender: FDA-Public Use
  Company Number: DE-JNJFOC-20040101383

PATIENT
  Age: 63 Year
  Sex: Female

DRUGS (1)
  1. REMICADE [Suspect]
     Indication: RHEUMATOID ARTHRITIS
     Dosage: 300 MG, INTRAVENOUS
     Route: 042
     Dates: end: 20031202

REACTIONS (4)
  - CARDIAC FAILURE [None]
  - INTERVERTEBRAL DISC PROTRUSION [None]
  - PNEUMONIA STREPTOCOCCAL [None]
  - PULMONARY OEDEMA [None]
